FAERS Safety Report 9798670 (Version 1)
Quarter: 2014Q1

REPORT INFORMATION
  Report Type: Spontaneous
  Country: TR (occurrence: TR)
  Receive Date: 20140106
  Receipt Date: 20140106
  Transmission Date: 20141002
  Serious: Yes (Hospitalization)
  Sender: FDA-Public Use
  Company Number: PHHY2013TR153377

PATIENT
  Sex: Male

DRUGS (4)
  1. VANCOMYCIN [Suspect]
     Indication: ANTIBIOTIC THERAPY
     Dosage: 15 MG/KG, Q18H
  2. NETILMICIN [Suspect]
     Indication: ANTIBIOTIC THERAPY
     Dosage: 5 MG/KG, DAILY
  3. AMPICILLIN [Concomitant]
     Indication: ANTIBIOTIC THERAPY
  4. MEROPENEM [Concomitant]

REACTIONS (7)
  - Pseudo-Bartter syndrome [Recovered/Resolved]
  - Metabolic alkalosis [Recovered/Resolved]
  - Hypokalaemia [Recovered/Resolved]
  - Hypercalciuria [Recovered/Resolved]
  - Hyponatraemia [Recovered/Resolved]
  - Hypomagnesaemia [Recovered/Resolved]
  - Hypocalcaemia [Recovered/Resolved]
